FAERS Safety Report 9269085 (Version 1)
Quarter: 2013Q2

REPORT INFORMATION
  Report Type: Spontaneous
  Country: US (occurrence: US)
  Receive Date: 20130503
  Receipt Date: 20130503
  Transmission Date: 20140414
  Serious: No
  Sender: FDA-Public Use
  Company Number: US-009507513-1304USA017233

PATIENT
  Age: 11 Year
  Sex: Male

DRUGS (3)
  1. ASMANEX TWISTHALER [Suspect]
     Dosage: UNK
     Route: 055
     Dates: start: 201304
  2. ZANTAC [Concomitant]
  3. SINGULAIR [Concomitant]

REACTIONS (3)
  - Cough [Recovering/Resolving]
  - Drug dose omission [Unknown]
  - Product quality issue [Unknown]
